FAERS Safety Report 4779894-6 (Version None)
Quarter: 2005Q3

REPORT INFORMATION
  Report Type: 
  Country: None (occurrence: None)
  Receive Date: 20050914
  Receipt Date: 20050426
  Transmission Date: 20060218
  Serious: Yes (Hospitalization)
  Sender: FDA-Public Use
  Company Number: 163-20785-05040505

PATIENT
  Age: 85 Year
  Sex: Female

DRUGS (1)
  1. THALOMID [Suspect]
     Indication: STOMATITIS
     Dosage: 50 MG, BID, ORAL
     Route: 048
     Dates: start: 20040219

REACTIONS (2)
  - FALL [None]
  - HIP FRACTURE [None]
